FAERS Safety Report 13897935 (Version 2)
Quarter: 2018Q1

REPORT INFORMATION
  Report Type: Spontaneous
  Country: FR (occurrence: FR)
  Receive Date: 20170823
  Receipt Date: 20180218
  Transmission Date: 20180508
  Serious: Yes (Other)
  Sender: FDA-Public Use
  Company Number: FR-UCBSA-2017032907

PATIENT
  Age: 72 Year
  Sex: Male

DRUGS (12)
  1. KEPPRA [Suspect]
     Active Substance: LEVETIRACETAM
     Indication: ASTROCYTOMA
     Dosage: UNK
     Route: 048
     Dates: start: 201704
  2. VITAMIN C [Concomitant]
     Active Substance: ASCORBIC ACID
     Indication: PRODUCT USED FOR UNKNOWN INDICATION
  3. KEPPRA [Suspect]
     Active Substance: LEVETIRACETAM
     Indication: OFF LABEL USE
  4. LEVOTHYROX [Concomitant]
     Active Substance: LEVOTHYROXINE
     Indication: PRODUCT USED FOR UNKNOWN INDICATION
  5. MEDROL [Suspect]
     Active Substance: METHYLPREDNISOLONE
     Indication: ASTROCYTOMA
     Dosage: 24 MG, ONCE DAILY (QD)
     Route: 048
     Dates: start: 201704
  6. TEMODAL [Suspect]
     Active Substance: TEMOZOLOMIDE
     Dosage: DOSAGE WAS INCREASED
     Dates: start: 20170613
  7. SANMIGRAN [Concomitant]
     Active Substance: PIZOTYLINE MALEATE
     Indication: PRODUCT USED FOR UNKNOWN INDICATION
  8. BI-TILDIEM [Concomitant]
     Active Substance: DILTIAZEM
     Indication: PRODUCT USED FOR UNKNOWN INDICATION
  9. ZOPICLONE [Concomitant]
     Active Substance: ZOPICLONE
     Indication: PRODUCT USED FOR UNKNOWN INDICATION
  10. TEMODAL [Suspect]
     Active Substance: TEMOZOLOMIDE
     Indication: ASTROCYTOMA
     Dosage: 750 MG, EV 4 WEEKS
     Route: 048
     Dates: start: 201704, end: 2017
  11. OMEPRAZOLE. [Concomitant]
     Active Substance: OMEPRAZOLE
     Indication: PRODUCT USED FOR UNKNOWN INDICATION
  12. ELIQUIS [Concomitant]
     Active Substance: APIXABAN
     Indication: PRODUCT USED FOR UNKNOWN INDICATION

REACTIONS (3)
  - Thrombocytopenia [Unknown]
  - Off label use [Unknown]
  - Purpura [Not Recovered/Not Resolved]

NARRATIVE: CASE EVENT DATE: 201704
